FAERS Safety Report 5303024-5 (Version None)
Quarter: 2007Q2

REPORT INFORMATION
  Report Type: 
  Country: None (occurrence: None)
  Receive Date: 20070413
  Receipt Date: 20070406
  Transmission Date: 20071010
  Serious: Yes (Hospitalization)
  Sender: FDA-Public Use
  Company Number: GXBR2007US00893

PATIENT
  Age: 90 Year
  Sex: Female
  Weight: 67.6 kg

DRUGS (16)
  1. HYDROXYZINE PAMOATE [Suspect]
     Indication: RASH
     Dosage: 25 MG, PRN, ORAL
     Route: 048
     Dates: start: 20070323, end: 20070403
  2. ACETAMINOPHEN [Concomitant]
  3. TYLENOL [Concomitant]
  4. ATROVENT [Concomitant]
  5. CALCIUM ACETATE (CALCIUM ACETATE) [Concomitant]
  6. DEXTROSE W/SODIUM CHLORIDE (GLUCOSE, SODIUM CHLORIDE) [Concomitant]
  7. BENADRYL ^WARNER-LAMBERT^/USA/(DIPHENHYDRAMINE HYDROCHLORIDE) [Concomitant]
  8. METHYLPREDNISOLONE (METHLYPREDNISOLONE) [Concomitant]
  9. METOPROLOL TARTRATE [Concomitant]
  10. NULTIVITAMINS (ASCORBIC ACID, ERGOCALCIFEROL, FOLIC ACID, NICOTINAMIDE [Concomitant]
  11. NITROGLYCERIN [Concomitant]
  12. TRIAMCINOLONE ACETONIDE W/NYSTATIN (NYSTATIN, TRIAMCINOLONE ACETONIDE) [Concomitant]
  13. ZOFRAN [Concomitant]
  14. PROTONIX [Concomitant]
  15. ZOCOR [Concomitant]
  16. SODIUM PHOSPHATE (SODIUM PHOSPHATE, SODIUM PHOSPHATE DIBASIC) [Concomitant]

REACTIONS (3)
  - PAIN [None]
  - STEVENS-JOHNSON SYNDROME [None]
  - THERMAL BURN [None]
